FAERS Safety Report 5020693-8 (Version None)
Quarter: 2006Q2

REPORT INFORMATION
  Report Type: 
  Country: None (occurrence: None)
  Receive Date: 20060602
  Receipt Date: 20060523
  Transmission Date: 20061013
  Serious: Yes (Other)
  Sender: FDA-Public Use
  Company Number: 2006050030

PATIENT
  Age: 80 Year
  Sex: Female

DRUGS (3)
  1. ASTELIN [Suspect]
     Indication: RHINITIS
     Dosage: 2 SPRAYS HS, IN
  2. FOSAMAX [Concomitant]
  3. LEVOXYL [Concomitant]

REACTIONS (3)
  - BASAL CELL CARCINOMA [None]
  - DYSGEUSIA [None]
  - SCAR [None]
